FAERS Safety Report 13079262 (Version 4)
Quarter: 2017Q4

REPORT INFORMATION
  Report Type: Report from Study
  Country: ES (occurrence: ES)
  Receive Date: 20170103
  Receipt Date: 20171215
  Transmission Date: 20180320
  Serious: Yes (Hospitalization)
  Sender: FDA-Public Use
  Company Number: ES-ROCHE-1668173

PATIENT
  Age: 65 Year
  Sex: Female
  Weight: 46.3 kg

DRUGS (20)
  1. OMEPRAZOL [Concomitant]
     Active Substance: OMEPRAZOLE
     Dosage: INDICATION: GASTRIC PROTECTOR
     Route: 065
  2. SPIRIVA [Concomitant]
     Active Substance: TIOTROPIUM BROMIDE MONOHYDRATE
     Indication: OBSTRUCTIVE AIRWAYS DISORDER
  3. TRAMADOL. [Concomitant]
     Active Substance: TRAMADOL
     Indication: CHEST PAIN
  4. ONDANSETRON [Concomitant]
     Active Substance: ONDANSETRON
     Route: 065
     Dates: start: 20151028, end: 20151028
  5. NOLOTIL (METAMIZOLE MAGNESIUM) [Concomitant]
     Active Substance: METAMIZOLE MAGNESIUM
     Indication: CHEST PAIN
  6. FENTANYL. [Concomitant]
     Active Substance: FENTANYL
     Indication: CANCER PAIN
     Route: 065
     Dates: start: 20160127
  7. PACLITAXEL. [Suspect]
     Active Substance: PACLITAXEL
     Indication: NON-SMALL CELL LUNG CANCER STAGE IV
     Dosage: MOST RECENT DOSE PRIOR TO THE EVENT WAS18/NOV/2015 : 216 MG
     Route: 042
     Dates: start: 20150916
  8. MONTELUKAST [Concomitant]
     Active Substance: MONTELUKAST SODIUM
     Indication: OBSTRUCTIVE AIRWAYS DISORDER
     Route: 065
     Dates: start: 201310
  9. CITALOPRAM [Concomitant]
     Active Substance: CITALOPRAM HYDROBROMIDE
     Indication: DEPRESSION
  10. HEPARIN SODIUM. [Concomitant]
     Active Substance: HEPARIN SODIUM
     Dosage: EMBOLIC PROPHYLAXIS
     Route: 065
     Dates: start: 20151231
  11. DIAZEPAM. [Concomitant]
     Active Substance: DIAZEPAM
     Indication: DEPRESSION
  12. DEXCLORFENIRAMINA [Concomitant]
     Indication: PREMEDICATION
     Route: 065
     Dates: start: 20151118, end: 20151118
  13. DEXCLORFENIRAMINA [Concomitant]
     Route: 065
     Dates: start: 20151028, end: 20151028
  14. ATEZOLIZUMAB. [Suspect]
     Active Substance: ATEZOLIZUMAB
     Indication: NON-SMALL CELL LUNG CANCER STAGE IV
     Dosage: MOST RECENT DOSE PRIOR TO THE EVENT WAS18/NOV/2015
     Route: 042
     Dates: start: 20150916
  15. RANITIDIN [Concomitant]
     Active Substance: RANITIDINE HYDROCHLORIDE
     Indication: PREMEDICATION
     Route: 065
     Dates: start: 20151118, end: 20151118
  16. RANITIDIN [Concomitant]
     Active Substance: RANITIDINE HYDROCHLORIDE
     Route: 065
     Dates: start: 20151028, end: 20151028
  17. ONDANSETRON [Concomitant]
     Active Substance: ONDANSETRON
     Indication: PREMEDICATION
     Route: 065
     Dates: start: 20151118, end: 20151118
  18. SEVREDOL [Concomitant]
     Active Substance: MORPHINE
     Indication: CANCER PAIN
     Route: 065
     Dates: start: 20160127
  19. CARBOPLATIN. [Suspect]
     Active Substance: CARBOPLATIN
     Indication: NON-SMALL CELL LUNG CANCER STAGE IV
     Dosage: ADMINISTERED AREA UNDER THE CONCENTRATION CURVE (AUC) 6 MILLIGRAMS PER MILLILITER PER MINUTE (MG/ML/
     Route: 042
     Dates: start: 20150916
  20. MYCOSTATIN [Concomitant]
     Active Substance: NYSTATIN
     Dosage: PROPHYLAXIS INFECTION
     Route: 065
     Dates: start: 20160127

REACTIONS (2)
  - Respiratory tract infection [Recovered/Resolved]
  - Respiratory tract infection [Recovered/Resolved]

NARRATIVE: CASE EVENT DATE: 20151123
